FAERS Safety Report 6509203-3 (Version None)
Quarter: 2009Q4

REPORT INFORMATION
  Report Type: 
  Country: None (occurrence: None)
  Receive Date: 20091221
  Receipt Date: 20090506
  Transmission Date: 20100525
  Serious: No
  Sender: FDA-Public Use
  Company Number: US-TYCO HEALTHCARE/MALLINCKRODT-T200901009

PATIENT

DRUGS (1)
  1. ULTRA-TECHNEKOW [Suspect]
     Dosage: UNK
     Dates: start: 20090506, end: 20090506

REACTIONS (1)
  - ACCIDENTAL EXPOSURE [None]
